FAERS Safety Report 18579271 (Version 1)
Quarter: 2020Q4

REPORT INFORMATION
  Report Type: Spontaneous
  Country: ES (occurrence: ES)
  Receive Date: 20201204
  Receipt Date: 20201204
  Transmission Date: 20210114
  Serious: Yes (Other)
  Sender: FDA-Public Use
  Company Number: ES-IGSA-BIG0012277

PATIENT
  Age: 59 Year
  Sex: Male

DRUGS (1)
  1. HUMAN NORMAL IMMUNOGLOBULIN (IV) [Suspect]
     Active Substance: HUMAN IMMUNOGLOBULIN G
     Indication: GUILLAIN-BARRE SYNDROME
     Dosage: UNK
     Route: 065

REACTIONS (2)
  - Drug ineffective [Unknown]
  - Hyponatraemia [Recovered/Resolved]
